FAERS Safety Report 16864822 (Version 1)
Quarter: 2019Q3

REPORT INFORMATION
  Report Type: Spontaneous
  Country: DE (occurrence: DE)
  Receive Date: 20190929
  Receipt Date: 20190929
  Transmission Date: 20191005
  Serious: Yes (Other)
  Sender: FDA-Public Use
  Company Number: PHHY2019DE223454

PATIENT
  Age: 0 Day
  Sex: Male
  Weight: 1.92 kg

DRUGS (9)
  1. LEVETIRACETAM. [Suspect]
     Active Substance: LEVETIRACETAM
     Indication: FOETAL EXPOSURE DURING PREGNANCY
     Dosage: MATERNAL DOSE: 1500 MG,QD (DOSE REDUCTION (750 MG X2)) (FIRST TRIMESTER)
     Route: 063
  2. LEVETIRACETAM. [Suspect]
     Active Substance: LEVETIRACETAM
     Dosage: MATERNAL DOSE: INCERSED (FIRST TRIMESTER)
     Route: 063
  3. LACOSAMIDE. [Suspect]
     Active Substance: LACOSAMIDE
     Indication: FOETAL EXPOSURE DURING PREGNANCY
     Dosage: MATERNAL DOSE: 200 MG, QD (100 MG, 2X/DAY (BID)) (FIRST TRIMESTER)
     Route: 063
     Dates: start: 201406, end: 2014
  4. LACOSAMIDE. [Suspect]
     Active Substance: LACOSAMIDE
     Dosage: MATERNAL DOSE:100 MG, QD (FIRST TRIMISTER)
     Route: 063
     Dates: start: 2014, end: 20141215
  5. LEVETIRACETAM. [Suspect]
     Active Substance: LEVETIRACETAM
     Dosage: MATERNAL DOSE: 3000 MG, 2X/DAY (BID) (FIRST TRIMESTER)
     Route: 063
     Dates: start: 20141215, end: 20141215
  6. LEVETIRACETAM. [Suspect]
     Active Substance: LEVETIRACETAM
     Dosage: MATERNAL DOSE: 3500 MG, QD (1500-500-1500,3X/DAY (TID)( (FIRST TRIMESTER)
     Route: 063
     Dates: end: 201406
  7. LACOSAMIDE. [Suspect]
     Active Substance: LACOSAMIDE
     Dosage: MATERNAL DOSE: 100 MG, QD (2X/DAY (BID) 50-0-50) (FIRST TRIMESTER)
     Route: 063
     Dates: start: 20141216, end: 20141218
  8. LYRICA [Concomitant]
     Active Substance: PREGABALIN
     Indication: FOETAL EXPOSURE DURING PREGNANCY
     Dosage: MATERNAL DOSE: 750 MG (150-300-300)
     Route: 063
  9. LEVETIRACETAM. [Suspect]
     Active Substance: LEVETIRACETAM
     Dosage: MATERNAL DOSE: 3500 MG, QD (1000-1000-500-1000, 4X/DAY (QID)) (FIRST TRIMESTER)
     Route: 063
     Dates: start: 20141216

REACTIONS (4)
  - Exposure via breast milk [Unknown]
  - Low birth weight baby [Unknown]
  - Premature baby [Unknown]
  - Foetal exposure during pregnancy [Unknown]

NARRATIVE: CASE EVENT DATE: 20150627
